FAERS Safety Report 4613926-0 (Version None)
Quarter: 2005Q1

REPORT INFORMATION
  Report Type: 
  Country: None (occurrence: None)
  Receive Date: 20050321
  Receipt Date: 20050314
  Transmission Date: 20050727
  Serious: Yes (Other)
  Sender: FDA-Public Use
  Company Number: GB-GLAXOSMITHKLINE-B0375259A

PATIENT
  Sex: Female

DRUGS (2)
  1. FLIXONASE [Suspect]
     Indication: SINUS DISORDER
     Route: 045
  2. HOMEOPATHIC MEDICATION [Suspect]

REACTIONS (10)
  - DEAFNESS UNILATERAL [None]
  - DYSPNOEA [None]
  - EAR DISCOMFORT [None]
  - EAR INFECTION [None]
  - EYE HAEMORRHAGE [None]
  - FEELING ABNORMAL [None]
  - HEADACHE [None]
  - HYPOAESTHESIA [None]
  - NASOPHARYNGITIS [None]
  - SINUS DISORDER [None]
